FAERS Safety Report 6543672-8 (Version None)
Quarter: 2010Q1

REPORT INFORMATION
  Report Type: 
  Country: None (occurrence: None)
  Receive Date: 20100120
  Receipt Date: 20100119
  Transmission Date: 20100710
  Serious: Yes (Hospitalization)
  Sender: FDA-Public Use
  Company Number: FR-WYE-G05374410

PATIENT
  Sex: Male

DRUGS (1)
  1. RHINADVIL [Suspect]
     Indication: SEASONAL ALLERGY
     Route: 048
     Dates: start: 20020401, end: 20020408

REACTIONS (1)
  - MYOCARDIAL INFARCTION [None]
